FAERS Safety Report 4457894-3 (Version None)
Quarter: 2004Q3

REPORT INFORMATION
  Report Type: 
  Country: None (occurrence: None)
  Receive Date: 20040924
  Receipt Date: 20040915
  Transmission Date: 20050211
  Serious: Yes (Hospitalization)
  Sender: FDA-Public Use
  Company Number: JP-JNJFOC-20040803455

PATIENT
  Sex: Male

DRUGS (4)
  1. RISPERDAL [Suspect]
     Indication: SCHIZOPHRENIA
     Route: 049
  2. HALOPERIDOL [Suspect]
     Indication: SCHIZOPHRENIA
     Route: 049
  3. BIPERIDEN HYDROCHLORIDE [Suspect]
     Indication: SCHIZOPHRENIA
     Route: 049
  4. BROTIZOLAM [Concomitant]
     Route: 049

REACTIONS (7)
  - DIALYSIS [None]
  - FALL [None]
  - INJURY [None]
  - JOINT DISLOCATION [None]
  - MUSCLE ATROPHY [None]
  - NEUROLEPTIC MALIGNANT SYNDROME [None]
  - RHABDOMYOLYSIS [None]
